FAERS Safety Report 15748988 (Version 2)
Quarter: 2019Q1

REPORT INFORMATION
  Report Type: Spontaneous
  Country: US (occurrence: US)
  Receive Date: 20181221
  Receipt Date: 20190115
  Transmission Date: 20190417
  Serious: No
  Sender: FDA-Public Use
  Company Number: US-ASTRAZENECA-2018SF54259

PATIENT
  Age: 28781 Day
  Sex: Male
  Weight: 111.1 kg

DRUGS (2)
  1. BYDUREON [Suspect]
     Active Substance: EXENATIDE
     Indication: TYPE 2 DIABETES MELLITUS
     Route: 058
  2. TRESEVA [Concomitant]
     Indication: TYPE 2 DIABETES MELLITUS
     Dosage: 100USP UNITS EVERY MORNING
     Route: 058

REACTIONS (3)
  - Device issue [Unknown]
  - Hypoacusis [Unknown]
  - Wrong technique in product usage process [Unknown]

NARRATIVE: CASE EVENT DATE: 20181121
